FAERS Safety Report 7051513-8 (Version None)
Quarter: 2010Q4

REPORT INFORMATION
  Report Type: 
  Country: None (occurrence: None)
  Receive Date: 20101019
  Receipt Date: 20101012
  Transmission Date: 20110411
  Serious: Yes (Hospitalization)
  Sender: FDA-Public Use
  Company Number: FR-SANOFI-AVENTIS-2010SA062007

PATIENT
  Age: 81 Year
  Sex: Female

DRUGS (14)
  1. STILNOX [Suspect]
     Route: 048
     Dates: end: 20100713
  2. DEROXAT [Suspect]
     Indication: ANXIETY
     Route: 048
     Dates: start: 20100501, end: 20100713
  3. DEROXAT [Suspect]
     Route: 048
     Dates: start: 20100501, end: 20100713
  4. ATARAX [Suspect]
     Route: 048
     Dates: end: 20100713
  5. ARICEPT [Suspect]
     Route: 048
     Dates: end: 20100713
  6. DIGITALINE NATIVELLE [Suspect]
     Route: 048
     Dates: end: 20100715
  7. LEVOTHYROXINE SODIUM [Suspect]
     Route: 048
     Dates: end: 20100713
  8. ALFUZOSIN HCL [Concomitant]
  9. LASIX [Concomitant]
  10. CANDESARTAN CILEXETIL [Concomitant]
  11. KARDEGIC [Concomitant]
     Route: 048
  12. URAPIDIL [Concomitant]
  13. SPASFON [Concomitant]
  14. FERROUS SULFATE/SUCCINIC ACID [Concomitant]

REACTIONS (4)
  - HYPERKALAEMIA [None]
  - HYPERTONIA [None]
  - TREMOR [None]
  - URINARY RETENTION [None]
